FAERS Safety Report 8833087 (Version 2)
Quarter: 2012Q4

REPORT INFORMATION
  Report Type: 
  Country: US (occurrence: US)
  Receive Date: 20121010
  Receipt Date: 20121119
  Transmission Date: 20130627
  Serious: Yes (Other)
  Sender: FDA-Public Use
  Company Number: US-PFIZER INC-2012245491

PATIENT
  Age: 29 Year
  Sex: Male

DRUGS (2)
  1. ZOLOFT [Suspect]
     Dosage: UNK
  2. PRISTIQ [Suspect]
     Dosage: UNK

REACTIONS (4)
  - Drug dependence [Unknown]
  - Post-traumatic stress disorder [Unknown]
  - Drug hypersensitivity [Unknown]
  - Drug screen positive [Unknown]
